FAERS Safety Report 17231042 (Version 1)
Quarter: 2020Q1

REPORT INFORMATION
  Report Type: Spontaneous
  Country: US (occurrence: US)
  Receive Date: 20200103
  Receipt Date: 20200103
  Transmission Date: 20200409
  Serious: No
  Sender: FDA-Public Use
  Company Number: US-PFIZER INC-2019558871

PATIENT
  Age: 80 Year
  Sex: Female
  Weight: 75.74 kg

DRUGS (1)
  1. XELJANZ [Suspect]
     Active Substance: TOFACITINIB CITRATE
     Indication: COLITIS ULCERATIVE
     Dosage: 5 MG, TWICE A DAY
     Route: 048
     Dates: start: 201901

REACTIONS (2)
  - Rash [Recovering/Resolving]
  - Hypersensitivity [Unknown]
